FAERS Safety Report 24415027 (Version 1)
Quarter: 2024Q4

REPORT INFORMATION
  Report Type: Spontaneous
  Country: RS (occurrence: RS)
  Receive Date: 20241009
  Receipt Date: 20241009
  Transmission Date: 20250115
  Serious: Yes (Other)
  Sender: Thea Pharma
  Company Number: RS-THEA-2024002216

PATIENT
  Sex: Female
  Weight: 55 kg

DRUGS (1)
  1. LATANOPROST [Suspect]
     Active Substance: LATANOPROST
     Indication: Open angle glaucoma
     Dosage: 1 PER 1 DAY DURING EVENING
     Route: 047
     Dates: start: 20220929, end: 20240923

REACTIONS (1)
  - Intraocular pressure increased [Recovered/Resolved]
